FAERS Safety Report 15766694 (Version 1)
Quarter: 2018Q4

REPORT INFORMATION
  Report Type: Spontaneous
  Country: GB (occurrence: GB)
  Receive Date: 20181227
  Receipt Date: 20181227
  Transmission Date: 20190205
  Serious: Yes (Other)
  Sender: FDA-Public Use
  Company Number: GB-MYLANLABS-2018M1094616

PATIENT
  Age: 5 Decade
  Sex: Male

DRUGS (5)
  1. TRABECTEDIN [Suspect]
     Active Substance: TRABECTEDIN
     Indication: MYXOID LIPOSARCOMA
     Dosage: 24 HOURS INFUSION OF TRABECTEDIN AT 1.5 MG/M2 EVERY 3 WEEKS
     Route: 050
     Dates: start: 201407, end: 201504
  2. TRABECTEDIN [Suspect]
     Active Substance: TRABECTEDIN
     Dosage: 24 HOURS INFUSION OF TRABECTEDIN AT 1.5 MG/M2 EVERY 3 WEEKS
     Route: 050
     Dates: start: 201602, end: 201608
  3. GEMCITABINE [Suspect]
     Active Substance: GEMCITABINE\GEMCITABINE HYDROCHLORIDE
     Indication: MYXOID LIPOSARCOMA
     Route: 065
  4. DACARBAZINE. [Suspect]
     Active Substance: DACARBAZINE
     Indication: MYXOID LIPOSARCOMA
     Route: 065
  5. DOXORUBICIN [Suspect]
     Active Substance: DOXORUBICIN
     Indication: MYXOID LIPOSARCOMA
     Route: 065
     Dates: start: 201304, end: 201307

REACTIONS (2)
  - Drug ineffective [Unknown]
  - Neutropenia [Recovered/Resolved]
